FAERS Safety Report 20415594 (Version 2)
Quarter: 2024Q1

REPORT INFORMATION
  Report Type: Other
  Country: US (occurrence: None)
  Receive Date: 20220202
  Receipt Date: 20240328
  Transmission Date: 20240410
  Serious: Yes (Other)
  Sender: FDA-Public Use
  Company Number: US-ROCHE-3014266

PATIENT
  Age: 52 Year
  Sex: Female

DRUGS (26)
  1. XOLAIR [Suspect]
     Active Substance: OMALIZUMAB
     Indication: Idiopathic urticaria
     Route: 058
  2. XOLAIR [Suspect]
     Active Substance: OMALIZUMAB
  3. XOLAIR [Suspect]
     Active Substance: OMALIZUMAB
  4. ALBUTEROL\IPRATROPIUM [Concomitant]
     Active Substance: ALBUTEROL\IPRATROPIUM
  5. LEVALBUTEROL TARTRATE [Concomitant]
     Active Substance: LEVALBUTEROL TARTRATE
  6. QVAR [Concomitant]
     Active Substance: BECLOMETHASONE DIPROPIONATE
  7. ZYRTEC [Concomitant]
     Active Substance: CETIRIZINE HYDROCHLORIDE
  8. MONTELUKAST [Concomitant]
     Active Substance: MONTELUKAST SODIUM
  9. PEPCID [Concomitant]
     Active Substance: FAMOTIDINE
  10. XOPENEX [Concomitant]
     Active Substance: LEVALBUTEROL HYDROCHLORIDE
  11. EPIPEN [Concomitant]
     Active Substance: EPINEPHRINE
  12. IPRATROPIUM [Concomitant]
     Active Substance: IPRATROPIUM
  13. XYZAL [Concomitant]
     Active Substance: LEVOCETIRIZINE DIHYDROCHLORIDE
     Dosage: 5 MG ORAL TAB
  14. DULOXETINE [Concomitant]
     Active Substance: DULOXETINE
     Dosage: 60 MG ORAL, 2 TAB DAILY
  15. ATORVASTATIN [Concomitant]
     Active Substance: ATORVASTATIN
  16. AMITRIPTYLINE [Concomitant]
     Active Substance: AMITRIPTYLINE
     Dosage: 25 MG ORAL TAB
  17. RIZATRIPTAN [Concomitant]
     Active Substance: RIZATRIPTAN
  18. CYCLOBENZAPRINE [Concomitant]
     Active Substance: CYCLOBENZAPRINE
     Dosage: 5 MG ORAL TAB
  19. NEXIUM [Concomitant]
     Active Substance: ESOMEPRAZOLE MAGNESIUM
     Dosage: 20 MG ORAL DELAYED RELEASE CAP
  20. CARVEDILOL [Concomitant]
     Active Substance: CARVEDILOL
     Dosage: 12..5 MG ORAL TAB
  21. FAMOTIDINE [Concomitant]
     Active Substance: FAMOTIDINE
     Dosage: 40 MG ORAL TAB
  22. MONTELUKAST [Concomitant]
     Active Substance: MONTELUKAST SODIUM
  23. LEVALBUTEROL [Concomitant]
     Active Substance: LEVALBUTEROL
  24. METFORMIN [Concomitant]
     Active Substance: METFORMIN HYDROCHLORIDE
     Dosage: 500 MG ORAL TAB
  25. TRULICITY [Concomitant]
     Active Substance: DULAGLUTIDE
  26. LANTUS [Concomitant]
     Active Substance: INSULIN GLARGINE

REACTIONS (3)
  - Diabetes mellitus [Unknown]
  - C1 esterase inhibitor decreased [Unknown]
  - Complement factor C4 increased [Unknown]
